FAERS Safety Report 20713885 (Version 3)
Quarter: 2023Q2

REPORT INFORMATION
  Report Type: Spontaneous
  Country: US (occurrence: None)
  Receive Date: 20220415
  Receipt Date: 20230607
  Transmission Date: 20230721
  Serious: Yes (Other)
  Sender: FDA-Public Use
  Company Number: US-ROCHE-3072325

PATIENT
  Age: 82 Year
  Sex: Female

DRUGS (2)
  1. VABYSMO [Suspect]
     Active Substance: FARICIMAB-SVOA
     Indication: Neovascular age-related macular degeneration
     Dosage: UNKNOWN
     Route: 050
     Dates: start: 20220314
  2. EYLEA [Concomitant]
     Active Substance: AFLIBERCEPT
     Dates: start: 20190715

REACTIONS (2)
  - Endophthalmitis [Unknown]
  - Hypopyon [Unknown]

NARRATIVE: CASE EVENT DATE: 20220314
